FAERS Safety Report 13718296 (Version 1)
Quarter: 2017Q3

REPORT INFORMATION
  Report Type: Spontaneous
  Country: CA (occurrence: CA)
  Receive Date: 20170705
  Receipt Date: 20170705
  Transmission Date: 20171127
  Serious: No
  Sender: FDA-Public Use
  Company Number: CA-FRESENIUS KABI-FK201705675

PATIENT
  Age: 53 Year
  Sex: Female
  Weight: 49.94 kg

DRUGS (1)
  1. ZOLEDRONIC ACID (MANUFACTURER UNKNOWN) [Suspect]
     Active Substance: ZOLEDRONIC ACID
     Indication: PRODUCT USED FOR UNKNOWN INDICATION
     Route: 042

REACTIONS (5)
  - Arthralgia [Unknown]
  - Myalgia [Unknown]
  - Influenza [Unknown]
  - Malaise [Unknown]
  - Influenza like illness [Unknown]
